FAERS Safety Report 4676804-7 (Version None)
Quarter: 2005Q2

REPORT INFORMATION
  Report Type: 
  Country: None (occurrence: None)
  Receive Date: 20050527
  Receipt Date: 20041215
  Transmission Date: 20051028
  Serious: Yes (Hospitalization)
  Sender: FDA-Public Use
  Company Number: DE-MERCK-0412DEU00144

PATIENT
  Age: 54 Year
  Sex: Male

DRUGS (7)
  1. VIOXX [Suspect]
     Route: 048
     Dates: start: 20030501, end: 20030605
  2. VIOXX [Suspect]
     Route: 048
     Dates: start: 20030606
  3. METOPROLOL SUCCINATE [Suspect]
     Route: 048
     Dates: start: 20030501, end: 20030605
  4. METOPROLOL SUCCINATE [Suspect]
     Route: 048
     Dates: start: 20030606
  5. RAMIPRIL [Concomitant]
     Route: 048
     Dates: start: 20030527
  6. ASPIRIN [Concomitant]
     Route: 048
     Dates: start: 20030527
  7. ZOCOR [Concomitant]
     Route: 048
     Dates: start: 20030527

REACTIONS (13)
  - ANXIETY [None]
  - ARRHYTHMIA [None]
  - CONFUSIONAL STATE [None]
  - DELIRIUM [None]
  - DEPRESSION [None]
  - DISORIENTATION [None]
  - DIZZINESS [None]
  - FATIGUE [None]
  - INTRACRANIAL VENOUS SINUS THROMBOSIS [None]
  - LUMBAR RADICULOPATHY [None]
  - SLEEP DISORDER [None]
  - SOMNOLENCE [None]
  - TENSION HEADACHE [None]
